FAERS Safety Report 4398254-3 (Version None)
Quarter: 2004Q3

REPORT INFORMATION
  Report Type: 
  Country: None (occurrence: None)
  Receive Date: 20040713
  Receipt Date: 20040629
  Transmission Date: 20050211
  Serious: Yes (Hospitalization)
  Sender: FDA-Public Use
  Company Number: TNZFR200400081

PATIENT
  Age: 76 Year
  Sex: Female
  Weight: 98 kg

DRUGS (2)
  1. INNOHEP [Suspect]
     Indication: PULMONARY EMBOLISM
     Dosage: 10000 IU (10000 IU, 1 IN 1D), SUBCUTANEOUS
     Route: 058
     Dates: start: 20021226, end: 20021229
  2. CAPTEA (CAPOZIDE) [Concomitant]

REACTIONS (6)
  - CARDIO-RESPIRATORY ARREST [None]
  - DEHYDRATION [None]
  - HAEMODIALYSIS [None]
  - HYPERKALAEMIA [None]
  - RENAL FAILURE ACUTE [None]
  - RESPIRATORY DISTRESS [None]
